FAERS Safety Report 7625484-7 (Version None)
Quarter: 2011Q3

REPORT INFORMATION
  Report Type: 
  Country: None (occurrence: None)
  Receive Date: 20110721
  Receipt Date: 20110708
  Transmission Date: 20111222
  Serious: Yes (Other)
  Sender: FDA-Public Use
  Company Number: GB-UCBSA-036977

PATIENT
  Age: 27 Year
  Sex: Female

DRUGS (5)
  1. KEPPRA [Suspect]
     Indication: EPILEPSY
     Dates: start: 20110101, end: 20110701
  2. LAMOTRIGINE [Concomitant]
     Dosage: WEANING OFF
     Dates: start: 20110101, end: 20110101
  3. VALPROATE SODIUM [Concomitant]
  4. LAMOTRIGINE [Concomitant]
     Dosage: DOSE INCREASED
     Dates: start: 20110101
  5. LAMOTRIGINE [Concomitant]

REACTIONS (3)
  - DRUG INEFFECTIVE [None]
  - EPILEPSY [None]
  - HYPOTONIA [None]
